FAERS Safety Report 9128364 (Version 1)
Quarter: 2013Q1

REPORT INFORMATION
  Report Type: Spontaneous
  Country: US (occurrence: US)
  Receive Date: 20130228
  Receipt Date: 20130228
  Transmission Date: 20140127
  Serious: No
  Sender: FDA-Public Use
  Company Number: US-GLAXOSMITHKLINE-A0969271A

PATIENT
  Age: 50 Year
  Sex: Female

DRUGS (2)
  1. IMITREX [Suspect]
     Indication: MIGRAINE
     Dosage: 6MG AS DIRECTED
     Route: 058
     Dates: start: 20090604
  2. DEVICE [Suspect]
     Indication: MIGRAINE
     Route: 058
     Dates: start: 20090604

REACTIONS (1)
  - Migraine [Unknown]
